FAERS Safety Report 7376127-1 (Version None)
Quarter: 2011Q1

REPORT INFORMATION
  Report Type: 
  Country: None (occurrence: None)
  Receive Date: 20110325
  Receipt Date: 20110311
  Transmission Date: 20110831
  Serious: Yes (Hospitalization, Other)
  Sender: FDA-Public Use
  Company Number: PHHY2011IT20095

PATIENT
  Age: 37 Year
  Sex: Female

DRUGS (9)
  1. METHYLPREDNISOLONE [Suspect]
     Dosage: 250 MG, QD
     Route: 042
  2. METHYLPREDNISOLONE [Suspect]
     Dosage: 25 MG, QD
  3. METHYLPREDNISOLONE [Suspect]
     Dosage: 50 MG, QD
  4. AZATHIOPRINE [Suspect]
     Dosage: 50 MG, QD
  5. METHYLPREDNISOLONE [Suspect]
     Dosage: 100 MG, QD
  6. METHYLPREDNISOLONE [Suspect]
     Dosage: 15 MG, QD
     Route: 048
  7. TACROLIMUS [Suspect]
     Dosage: 0.5 MG, BID
  8. PREDNISONE [Suspect]
     Dosage: 5 MG, QD
  9. TACROLIMUS [Suspect]
     Dosage: 2 MG, BID

REACTIONS (18)
  - LEUKOPENIA [None]
  - PERITONEAL DISORDER [None]
  - COLITIS [None]
  - DIARRHOEA [None]
  - ABDOMINAL TENDERNESS [None]
  - FATIGUE [None]
  - PYREXIA [None]
  - ABDOMINAL DISTENSION [None]
  - GASTROINTESTINAL HYPOMOTILITY [None]
  - PANCYTOPENIA [None]
  - WEIGHT DECREASED [None]
  - ABDOMINAL DISCOMFORT [None]
  - INFECTION [None]
  - ASTHENIA [None]
  - BONE MARROW FAILURE [None]
  - CLOSTRIDIUM TEST POSITIVE [None]
  - OBLITERATIVE BRONCHIOLITIS [None]
  - ABDOMINAL PAIN [None]
